FAERS Safety Report 7264455-X (Version None)
Quarter: 2011Q1

REPORT INFORMATION
  Report Type: 
  Country: None (occurrence: None)
  Receive Date: 20110131
  Receipt Date: 20110119
  Transmission Date: 20110831
  Serious: Yes (Hospitalization)
  Sender: FDA-Public Use
  Company Number: DE-JNJFOC-20110105350

PATIENT
  Age: 78 Year
  Sex: Female
  Weight: 84 kg

DRUGS (10)
  1. GOLIMUMAB [Suspect]
     Indication: RHEUMATOID ARTHRITIS
     Route: 058
  2. ATACAND [Concomitant]
     Indication: HYPERTENSION
     Route: 048
  3. FOLIC ACID [Concomitant]
     Indication: PROPHYLAXIS
     Route: 048
  4. MARCUMAR [Concomitant]
     Indication: PULMONARY EMBOLISM
     Route: 048
  5. BELOC ZOK [Concomitant]
     Indication: HYPERTENSION
     Route: 048
  6. HYDROCHLOROTHIAZIDE [Concomitant]
     Indication: HYPERTENSION
     Route: 048
  7. METEX [Suspect]
     Indication: RHEUMATOID ARTHRITIS
     Route: 058
  8. PREDNISOLONE [Suspect]
     Indication: RHEUMATOID ARTHRITIS
     Route: 058
  9. CALCIGEN D [Concomitant]
     Indication: OSTEOPOROSIS
     Route: 048
  10. GOLIMUMAB [Suspect]
     Route: 058

REACTIONS (1)
  - ERYSIPELAS [None]
